FAERS Safety Report 10708079 (Version 1)
Quarter: 2015Q1

REPORT INFORMATION
  Report Type: Spontaneous
  Country: TW (occurrence: TW)
  Receive Date: 20150113
  Receipt Date: 20150113
  Transmission Date: 20150721
  Serious: Yes (Other)
  Sender: FDA-Public Use
  Company Number: PHHY2015TW000953

PATIENT
  Age: 70 Year
  Sex: Male

DRUGS (2)
  1. INTERFERON ALFA NOS [Suspect]
     Active Substance: INTERFERON ALFA-2A OR INTERFERON ALFA-2B
     Indication: CHRONIC HEPATITIS C
     Route: 030
  2. RIBAVIRIN. [Suspect]
     Active Substance: RIBAVIRIN
     Indication: CHRONIC HEPATITIS C
     Route: 030

REACTIONS (7)
  - Cutaneous sarcoidosis [Unknown]
  - Pulmonary mass [Recovering/Resolving]
  - Skin lesion [Recovering/Resolving]
  - Granuloma [Unknown]
  - Injection site erythema [Unknown]
  - Pulmonary sarcoidosis [Unknown]
  - Injection site papule [Unknown]
